FAERS Safety Report 5888790-2 (Version None)
Quarter: 2008Q3

REPORT INFORMATION
  Report Type: 
  Country: None (occurrence: None)
  Receive Date: 20080917
  Receipt Date: 20080917
  Transmission Date: 20090109
  Serious: No
  Sender: FDA-Public Use
  Company Number: None

PATIENT
  Sex: Female
  Weight: 63.5036 kg

DRUGS (1)
  1. FENTANYL-100 [Suspect]
     Indication: PAIN
     Dosage: 3 100MCG EVERY 48 HOURS TRANSDERMA
     Route: 062
     Dates: start: 20080826, end: 20080911

REACTIONS (1)
  - PHARMACEUTICAL PRODUCT COMPLAINT [None]
